FAERS Safety Report 5520141-5 (Version None)
Quarter: 2007Q4

REPORT INFORMATION
  Report Type: 
  Country: None (occurrence: None)
  Receive Date: 20071116
  Receipt Date: 20071113
  Transmission Date: 20080405
  Serious: Yes (Life-Threatening, Hospitalization, Disabling, Other)
  Sender: FDA-Public Use
  Company Number: JP-BRISTOL-MYERS SQUIBB COMPANY-13971155

PATIENT
  Age: 80 Year
  Sex: Female

DRUGS (2)
  1. TAXOL [Suspect]
     Indication: CERVIX CARCINOMA
     Route: 041
     Dates: start: 20071022, end: 20071022
  2. CARBOMERCK [Suspect]
     Indication: CERVIX CARCINOMA
     Route: 041
     Dates: start: 20071022, end: 20071022

REACTIONS (3)
  - ATRIAL FIBRILLATION [None]
  - SEPTIC SHOCK [None]
  - STRESS CARDIOMYOPATHY [None]
